FAERS Safety Report 8123041-X (Version None)
Quarter: 2012Q1

REPORT INFORMATION
  Report Type: 
  Country: None (occurrence: None)
  Receive Date: 20120208
  Receipt Date: 20120129
  Transmission Date: 20120608
  Serious: Yes (Other)
  Sender: FDA-Public Use
  Company Number: CHPA2012US002363

PATIENT
  Sex: Female

DRUGS (2)
  1. EXCEDRIN (MIGRAINE) [Suspect]
     Dosage: UNK, QID
     Route: 048
  2. DRUG THERAPY NOS [Concomitant]
     Indication: PAIN

REACTIONS (1)
  - ULCER [None]
